FAERS Safety Report 4353156-3 (Version None)
Quarter: 2004Q2

REPORT INFORMATION
  Report Type: 
  Country: None (occurrence: None)
  Receive Date: 20040429
  Receipt Date: 20040421
  Transmission Date: 20050107
  Serious: Yes (Death)
  Sender: FDA-Public Use
  Company Number: 04P-087-0258515-00

PATIENT
  Age: 77 Year
  Sex: Female

DRUGS (1)
  1. ISOPTIN [Suspect]
     Dosage: 5 MG
     Dates: start: 20031022, end: 20031022

REACTIONS (1)
  - SHOCK [None]
